FAERS Safety Report 9099463 (Version 4)
Quarter: 2013Q3

REPORT INFORMATION
  Report Type: Report from Study
  Country: GB (occurrence: GB)
  Receive Date: 20130214
  Receipt Date: 20130715
  Transmission Date: 20140515
  Serious: Yes (Life-Threatening, Hospitalization, Other)
  Sender: FDA-Public Use
  Company Number: GB-BRISTOL-MYERS SQUIBB COMPANY-17365602

PATIENT
  Age: 67 Year
  Sex: Male

DRUGS (7)
  1. CO-BENELDOPA [Concomitant]
     Dates: start: 20120504
  2. EZETIMIBE [Concomitant]
  3. SAXAGLIPTIN [Suspect]
     Indication: TYPE 2 DIABETES MELLITUS
     Dosage: INTERRUPTED ON 18APR2011
     Dates: start: 20101021, end: 20110418
  4. BIPHASIC ISOPHANE INSULIN [Suspect]
     Indication: TYPE 2 DIABETES MELLITUS
     Dosage: UNK-26APR12:100 MICROMOL?26APR12-ONG:130MICROMOLE
  5. ASPIRIN [Concomitant]
  6. CO-CODAMOL [Concomitant]
     Dates: start: 20110412
  7. ZOPICLONE [Concomitant]
     Dates: start: 20110928

REACTIONS (2)
  - Anaphylactic reaction [Recovered/Resolved]
  - Cholelithiasis [Recovered/Resolved]
